FAERS Safety Report 6389698-9 (Version None)
Quarter: 2009Q4

REPORT INFORMATION
  Report Type: 
  Country: None (occurrence: None)
  Receive Date: 20091002
  Receipt Date: 20091002
  Transmission Date: 20100525
  Serious: Yes (Life-Threatening)
  Sender: FDA-Public Use
  Company Number: None

PATIENT
  Age: 51 Year
  Sex: Female
  Weight: 68.0396 kg

DRUGS (2)
  1. VIRGINIA SLIMS MENTOL LIGHTS PHILLIP MORRIS [Suspect]
     Dates: start: 20090715, end: 20090801
  2. SALEM MENTHOL LIGHTS PHILLIP MORRIS [Suspect]
     Dates: start: 20090801, end: 20090930

REACTIONS (9)
  - CHEST DISCOMFORT [None]
  - DIZZINESS [None]
  - DYSGEUSIA [None]
  - DYSPNOEA [None]
  - HEADACHE [None]
  - LUNG DISORDER [None]
  - NAUSEA [None]
  - PALPITATIONS [None]
  - TINNITUS [None]
